FAERS Safety Report 15691053 (Version 1)
Quarter: 2018Q4

REPORT INFORMATION
  Report Type: Spontaneous
  Country: US (occurrence: US)
  Receive Date: 20181205
  Receipt Date: 20181205
  Transmission Date: 20190205
  Serious: No
  Sender: FDA-Public Use
  Company Number: US-BAYER-2018-222913

PATIENT
  Age: 67 Year
  Sex: Female
  Weight: 63 kg

DRUGS (10)
  1. PRILOSEC [Concomitant]
     Active Substance: OMEPRAZOLE MAGNESIUM
  2. VALSARTAN. [Concomitant]
     Active Substance: VALSARTAN
  3. CLONAZEPAM. [Concomitant]
     Active Substance: CLONAZEPAM
  4. BAYER LOW DOSE [Concomitant]
     Active Substance: ASPIRIN
     Dosage: UNK
     Route: 048
  5. MIRALAX [Suspect]
     Active Substance: POLYETHYLENE GLYCOL 3350
     Indication: DIVERTICULITIS
     Dosage: UNK
     Route: 048
  6. OMEPRAZOL [OMEPRAZOLE] [Concomitant]
  7. MONTELUKAST [Concomitant]
     Active Substance: MONTELUKAST SODIUM
     Indication: NASOPHARYNGITIS
  8. ATENOLOL. [Concomitant]
     Active Substance: ATENOLOL
  9. IMIPRAMINE [Concomitant]
     Active Substance: IMIPRAMINE
  10. MONTELUKAST [Concomitant]
     Active Substance: MONTELUKAST SODIUM
     Indication: HYPERSENSITIVITY
     Dosage: UNK

REACTIONS (2)
  - Incorrect product administration duration [Unknown]
  - Product use in unapproved indication [None]
